FAERS Safety Report 9528415 (Version 3)
Quarter: 2013Q4

REPORT INFORMATION
  Report Type: Spontaneous
  Country: US (occurrence: US)
  Receive Date: 20130917
  Receipt Date: 20131231
  Transmission Date: 20140711
  Serious: Yes (Hospitalization)
  Sender: FDA-Public Use
  Company Number: US-PFIZER INC-2013264602

PATIENT
  Age: 68 Year
  Sex: Female
  Weight: 65.76 kg

DRUGS (12)
  1. CALAN SR [Suspect]
     Indication: HYPERTENSION
     Dosage: 180 MG, 2X/DAY
     Route: 048
  2. CALAN SR [Suspect]
     Dosage: 180 MG, UNK
     Route: 048
     Dates: end: 2011
  3. CALAN SR [Suspect]
     Dosage: 240 MG, UNK
     Route: 048
     Dates: start: 2011, end: 2011
  4. CALAN SR [Suspect]
     Dosage: 180 MG, 2X/DAY
     Route: 048
  5. CALAN SR [Suspect]
     Dosage: 240 MG, 2X/DAY
     Route: 048
  6. VERAPAMIL HCL [Suspect]
     Indication: HYPERTENSION
     Dosage: UNK
  7. TRAMADOL HYDROCHLORIDE [Suspect]
     Indication: PAIN
     Dosage: UNK
  8. MOTRIN [Suspect]
     Dosage: UNK
  9. PERCOCET [Concomitant]
     Indication: PAIN
     Dosage: UNK
  10. VICODIN [Concomitant]
     Indication: PAIN
     Dosage: UNK
  11. LOTENSIN [Concomitant]
     Indication: HYPERTENSION
     Dosage: 40 MG, 2X/DAY
  12. LEVOTHYROXINE [Concomitant]
     Indication: HYPOTHYROIDISM
     Dosage: 50 UG, 1X/DAY

REACTIONS (8)
  - Myocardial infarction [Unknown]
  - Stress [Unknown]
  - Gastrooesophageal reflux disease [Unknown]
  - Influenza like illness [Unknown]
  - Somnolence [Unknown]
  - Dizziness [Unknown]
  - Malaise [Unknown]
  - Headache [Unknown]
